FAERS Safety Report 9269415 (Version 4)
Quarter: 2014Q2

REPORT INFORMATION
  Report Type: Spontaneous
  Country: US (occurrence: US)
  Receive Date: 20130503
  Receipt Date: 20140516
  Transmission Date: 20141212
  Serious: Yes (Hospitalization, Other)
  Sender: FDA-Public Use
  Company Number: US-BAYER-2013-052558

PATIENT
  Age: 21 Year
  Sex: Female
  Weight: 70.3 kg

DRUGS (9)
  1. YASMIN [Suspect]
     Indication: CONTRACEPTION
     Dosage: UNK
     Dates: start: 20070716, end: 20080616
  2. OCELLA [Suspect]
     Indication: CONTRACEPTION
     Dosage: UNK
     Dates: start: 20070716, end: 20100421
  3. SYNTHROID [Concomitant]
     Dosage: 100 MCG
     Dates: start: 20100223
  4. SYNTHROID [Concomitant]
     Dosage: 200 MCG
     Dates: start: 20100405
  5. FENTANYL [Concomitant]
     Indication: PAIN
  6. FENTANYL [Concomitant]
     Indication: PAIN
  7. SYNTHROID [Concomitant]
  8. LEVOXYL [Concomitant]
  9. WELLBUTRIN [Concomitant]
     Indication: DEPRESSION
     Dosage: UNK
     Dates: start: 2005, end: 20120812

REACTIONS (10)
  - Splenic infarction [Recovered/Resolved]
  - Splenic infarction [Recovered/Resolved]
  - Deep vein thrombosis [None]
  - Abdominal pain upper [None]
  - Hypokalaemia [None]
  - Splenic fibrosis [None]
  - Injury [None]
  - Pain [None]
  - Pain [None]
  - Cholecystitis [None]
